FAERS Safety Report 24955359 (Version 1)
Quarter: 2025Q1

REPORT INFORMATION
  Report Type: Spontaneous
  Country: US (occurrence: None)
  Receive Date: 20250210
  Receipt Date: 20250210
  Transmission Date: 20250409
  Serious: Yes (Disabling, Other)
  Sender: FDA-CTU
  Company Number: None

PATIENT
  Age: 56 Year
  Sex: Female
  Weight: 45 kg

DRUGS (7)
  1. PEPCID AC MAXIMUM STRENGTH [Suspect]
     Active Substance: FAMOTIDINE
     Indication: Gastrooesophageal reflux disease
     Dates: start: 20211020, end: 20220315
  2. SYNTHROID [Concomitant]
     Active Substance: LEVOTHYROXINE SODIUM
  3. ZYRTEC [Concomitant]
     Active Substance: CETIRIZINE HYDROCHLORIDE
  4. VITAMIN D3 [Concomitant]
     Active Substance: CHOLECALCIFEROL
  5. CALCIUM CARBONATE [Concomitant]
     Active Substance: CALCIUM CARBONATE
  6. VITAMIN C [Concomitant]
     Active Substance: ASCORBIC ACID
  7. Nicotine Lozenge^s [Concomitant]

REACTIONS (5)
  - Hallucination [None]
  - Delirium [None]
  - Psychotic disorder [None]
  - Hallucination, auditory [None]
  - Therapy cessation [None]

NARRATIVE: CASE EVENT DATE: 20211020
